FAERS Safety Report 6526729-7 (Version None)
Quarter: 2010Q1

REPORT INFORMATION
  Report Type: 
  Country: None (occurrence: None)
  Receive Date: 20100104
  Receipt Date: 20100104
  Transmission Date: 20100710
  Serious: No
  Sender: FDA-Public Use
  Company Number: None

PATIENT
  Sex: Male
  Weight: 41.7309 kg

DRUGS (2)
  1. RISPERDAL [Suspect]
     Indication: TOURETTE'S DISORDER
     Dosage: 0.5MG BID PO
     Route: 048
     Dates: start: 20091202, end: 20091214
  2. STRATTERA [Concomitant]

REACTIONS (2)
  - RASH [None]
  - SKIN EXFOLIATION [None]
